FAERS Safety Report 4420870-0 (Version None)
Quarter: 2004Q3

REPORT INFORMATION
  Report Type: 
  Country: None (occurrence: None)
  Receive Date: 20040809
  Receipt Date: 20020516
  Transmission Date: 20050211
  Serious: Yes (Hospitalization, Disabling)
  Sender: FDA-Public Use
  Company Number: US-MERCK-0205USA01980

PATIENT
  Age: 42 Year
  Sex: Female
  Weight: 133 kg

DRUGS (14)
  1. [THERAPY UNSPECIFIED] [Concomitant]
     Route: 065
  2. ELAVIL [Concomitant]
     Route: 065
  3. ATENOLOL [Concomitant]
     Indication: HYPERTENSION
     Route: 065
  4. ATENOLOL [Concomitant]
     Indication: ATRIAL TACHYCARDIA
     Route: 065
  5. LONOX [Concomitant]
     Route: 065
  6. DYAZIDE [Concomitant]
     Route: 065
  7. HYDROCORTISONE [Concomitant]
     Route: 065
  8. ZESTRIL [Concomitant]
     Indication: HYPERTENSION
     Route: 065
  9. PAXIL [Concomitant]
     Route: 065
  10. VIOXX [Suspect]
     Indication: FIBROMYALGIA
     Route: 048
     Dates: start: 20000728, end: 20001006
  11. VIOXX [Suspect]
     Route: 048
     Dates: start: 20000714, end: 20000815
  12. VIOXX [Suspect]
     Indication: SPONDYLITIS
     Route: 048
     Dates: start: 20000728, end: 20001006
  13. VIOXX [Suspect]
     Route: 048
     Dates: start: 20000714, end: 20000815
  14. TRAZODONE HYDROCHLORIDE [Concomitant]
     Route: 065

REACTIONS (31)
  - ANAL FISSURE [None]
  - ANGINA PECTORIS [None]
  - ANXIETY [None]
  - BACK INJURY [None]
  - BACK PAIN [None]
  - BALANCE DISORDER [None]
  - BLOOD PRESSURE DECREASED [None]
  - BRONCHITIS [None]
  - BURSITIS [None]
  - CARDIOMEGALY [None]
  - CHEST PAIN [None]
  - CHEST WALL PAIN [None]
  - CONSTIPATION [None]
  - COORDINATION ABNORMAL [None]
  - DIABETES MELLITUS [None]
  - DIABETES MELLITUS NON-INSULIN-DEPENDENT [None]
  - DIASTOLIC DYSFUNCTION [None]
  - GASTROOESOPHAGEAL REFLUX DISEASE [None]
  - HAEMORRHAGE [None]
  - HYPOGONADISM [None]
  - INSOMNIA [None]
  - INTERVERTEBRAL DISC DEGENERATION [None]
  - METABOLIC SYNDROME [None]
  - NEPHRITIS [None]
  - PANIC ATTACK [None]
  - PERICARDIAL EFFUSION [None]
  - SEPTIC SHOCK [None]
  - SINUSITIS [None]
  - TENDONITIS [None]
  - THERAPEUTIC AGENT TOXICITY [None]
  - VENTRICULAR HYPERTROPHY [None]
